FAERS Safety Report 4878066-4 (Version None)
Quarter: 2005Q4

REPORT INFORMATION
  Report Type: 
  Country: None (occurrence: None)
  Receive Date: 20051206
  Receipt Date: 20050825
  Transmission Date: 20060501
  Serious: No
  Sender: FDA-Public Use
  Company Number: USA0508106780

PATIENT
  Age: 48 Year
  Sex: Female

DRUGS (6)
  1. CYMBALTA [Suspect]
     Dosage: 60 MG
  2. PROZAC (FLUOXENTINE HYDROCLORIDE) [Concomitant]
  3. WELLBUTRIN [Concomitant]
  4. LAMICTAL [Concomitant]
  5. ATIVAN [Concomitant]
  6. AMBIEN [Concomitant]

REACTIONS (2)
  - ANGER [None]
  - IRRITABILITY [None]
